FAERS Safety Report 9137380 (Version 1)
Quarter: 2013Q1

REPORT INFORMATION
  Report Type: Spontaneous
  Country: US (occurrence: US)
  Receive Date: 20130219
  Receipt Date: 20130219
  Transmission Date: 20140127
  Serious: No
  Sender: FDA-Public Use
  Company Number: US-BRISTOL-MYERS SQUIBB COMPANY-16813149

PATIENT
  Age: 72 Year
  Sex: Female
  Weight: 55.78 kg

DRUGS (11)
  1. ORENCIA [Suspect]
     Indication: RHEUMATOID ARTHRITIS
     Dosage: EXPDATE OCT2014*2
     Route: 042
     Dates: start: 201201
  2. METHOTREXATE [Concomitant]
     Route: 048
  3. FOLIC ACID [Concomitant]
  4. SEVELAMER HCL [Concomitant]
  5. OXYCODONE [Concomitant]
     Dosage: 1DF:30 UNIT NOS
     Route: 048
  6. CYMBALTA [Concomitant]
     Route: 048
  7. DURAGESIC PATCH [Concomitant]
  8. PREDNISONE [Concomitant]
     Route: 048
  9. SAVELLA [Concomitant]
     Route: 048
  10. NEXIUM [Concomitant]
     Route: 048
  11. DOXAZOSIN [Concomitant]

REACTIONS (2)
  - Fall [Unknown]
  - Joint injury [Not Recovered/Not Resolved]
